FAERS Safety Report 5041939-6 (Version None)
Quarter: 2006Q2

REPORT INFORMATION
  Report Type: 
  Country: None (occurrence: None)
  Receive Date: 20060630
  Receipt Date: 20060619
  Transmission Date: 20061013
  Serious: Yes (Other)
  Sender: FDA-Public Use
  Company Number: T200600678

PATIENT
  Age: 74 Year
  Sex: Female
  Weight: 50 kg

DRUGS (10)
  1. TOFRANIL [Suspect]
     Indication: DEPRESSION
     Dosage: 20 MG, QD, UNK
  2. LOFEPRAMINE            (LOFEPRAMINE) [Suspect]
     Indication: DEPRESSION
     Dosage: 75 MG, QD, UNK
  3. LIDOCAINE [Concomitant]
  4. EPINEPHRINE [Concomitant]
  5. PROPOFOL [Concomitant]
  6. VERCURONIUM (VECURONIUM) [Concomitant]
  7. SEVOFLURANE [Concomitant]
  8. NITROUS OXIDE W/ OXYGEN [Concomitant]
  9. OXYGEN (OXYGEN) [Concomitant]
  10. MEPIVACAINE HCL [Concomitant]

REACTIONS (9)
  - ADRENAL INSUFFICIENCY [None]
  - ANAESTHETIC COMPLICATION [None]
  - BLOOD PRESSURE DIASTOLIC DECREASED [None]
  - BLOOD PRESSURE SYSTOLIC INCREASED [None]
  - HEART RATE DECREASED [None]
  - HYPOVOLAEMIA [None]
  - OPERATIVE HAEMORRHAGE [None]
  - PROCEDURAL HYPOTENSION [None]
  - THERAPY NON-RESPONDER [None]
